FAERS Safety Report 6024867-9 (Version None)
Quarter: 2008Q4

REPORT INFORMATION
  Report Type: 
  Country: None (occurrence: None)
  Receive Date: 20081231
  Receipt Date: 20081216
  Transmission Date: 20090506
  Serious: Yes (Other)
  Sender: FDA-Public Use
  Company Number: JP-PFIZER INC-2008152560

PATIENT

DRUGS (4)
  1. GABAPEN [Suspect]
     Indication: CONVULSION
     Dosage: UNK
     Route: 048
  2. PHENYTOIN AND PHENYTOIN SODIUM [Suspect]
     Dosage: UNK
     Route: 048
  3. PHENOBARBITAL TAB [Suspect]
     Route: 048
  4. EXCEGRAN [Suspect]
     Route: 048

REACTIONS (3)
  - CONVULSION [None]
  - DIZZINESS [None]
  - LIVER DISORDER [None]
